FAERS Safety Report 12262878 (Version 1)
Quarter: 2016Q2

REPORT INFORMATION
  Report Type: Spontaneous
  Country: None (occurrence: None)
  Receive Date: 20160412
  Receipt Date: 20160412
  Transmission Date: 20160815
  Serious: No
  Sender: FDA-Public Use
  Company Number: None

PATIENT
  Age: 36 Year
  Sex: Male

DRUGS (1)
  1. ABILIFY [Suspect]
     Active Substance: ARIPIPRAZOLE
     Indication: PRODUCT USED FOR UNKNOWN INDICATION
     Dates: start: 20160301, end: 20160410

REACTIONS (5)
  - Headache [None]
  - Myocardial infarction [None]
  - Insomnia [None]
  - General physical health deterioration [None]
  - Mood altered [None]

NARRATIVE: CASE EVENT DATE: 20140401
